FAERS Safety Report 8793248 (Version 2)
Quarter: 2013Q4

REPORT INFORMATION
  Report Type: Spontaneous
  Country: US (occurrence: US)
  Receive Date: 20120918
  Receipt Date: 20131031
  Transmission Date: 20140711
  Serious: Yes (Hospitalization, Other)
  Sender: FDA-Public Use
  Company Number: US-MERCK-1209USA005967

PATIENT
  Sex: Female

DRUGS (2)
  1. SAPHRIS [Suspect]
     Dosage: 10 MG, UNK
     Route: 060
  2. PROZAC [Concomitant]

REACTIONS (10)
  - Hypoaesthesia oral [Unknown]
  - Dyspnoea [Unknown]
  - Dysstasia [Unknown]
  - Dizziness [Unknown]
  - Muscular weakness [Unknown]
  - Dysphagia [Unknown]
  - Tremor [Unknown]
  - Speech disorder [Unknown]
  - Movement disorder [Unknown]
  - Motor dysfunction [Unknown]
